FAERS Safety Report 9038569 (Version 2)
Quarter: 2013Q1

REPORT INFORMATION
  Report Type: Spontaneous
  Country: US (occurrence: US)
  Receive Date: 20130129
  Receipt Date: 20130221
  Transmission Date: 20140127
  Serious: Yes (Life-Threatening)
  Sender: FDA-Public Use
  Company Number: US-009507513-1301USA010624

PATIENT
  Age: 65 Year
  Sex: Female

DRUGS (2)
  1. DULERA [Suspect]
     Indication: ASTHMA
     Dosage: 2 PUFFS
     Route: 055
     Dates: start: 201301, end: 201301
  2. DULERA [Suspect]
     Dosage: 2 PUFFS
     Route: 045

REACTIONS (4)
  - Dyspnoea [Recovering/Resolving]
  - Palatal oedema [Recovering/Resolving]
  - Drug hypersensitivity [Recovering/Resolving]
  - Swollen tongue [Recovering/Resolving]
